FAERS Safety Report 10022360 (Version 1)
Quarter: 2014Q1

REPORT INFORMATION
  Report Type: Spontaneous
  Country: US (occurrence: None)
  Receive Date: 20140318
  Receipt Date: 20140318
  Transmission Date: 20141002
  Serious: Yes (Other)
  Sender: FDA-Public Use
  Company Number: None

PATIENT
  Age: 33 Year
  Sex: Male
  Weight: 132.9 kg

DRUGS (1)
  1. DULOXETINE [Suspect]
     Indication: DEPRESSION
     Dosage: 1X DAY
     Route: 048
     Dates: start: 201401

REACTIONS (5)
  - Vomiting [None]
  - Thinking abnormal [None]
  - Dizziness [None]
  - Suicidal ideation [None]
  - Homicidal ideation [None]
